FAERS Safety Report 8611930-9 (Version None)
Quarter: 2012Q3

REPORT INFORMATION
  Report Type: 
  Country: None (occurrence: None)
  Receive Date: 20120822
  Receipt Date: 20120813
  Transmission Date: 20120928
  Serious: Yes (Hospitalization, Other)
  Sender: FDA-Public Use
  Company Number: US-ASTRAZENECA-2012SE48212

PATIENT
  Age: 79 Year
  Sex: Male
  Weight: 77.6 kg

DRUGS (15)
  1. METFORMIN [Concomitant]
  2. NITROSTAT [Concomitant]
  3. PLAVIX [Concomitant]
     Route: 048
  4. ICAPS [Concomitant]
     Route: 048
  5. ASPIRIN [Concomitant]
     Route: 048
  6. BENADRYL [Concomitant]
     Route: 048
  7. CAPRELSA [Suspect]
     Indication: THYROID CANCER
     Route: 048
     Dates: start: 20120323, end: 20120401
  8. PREDNISONE TAB [Concomitant]
     Dosage: AS DIRECTED
     Route: 048
  9. NIACIN [Concomitant]
     Route: 048
  10. SYNTHROID [Concomitant]
     Route: 048
  11. LISINOPRIL [Concomitant]
     Route: 048
  12. ZOCOR [Concomitant]
     Route: 048
  13. NIACIN [Concomitant]
     Route: 048
  14. IRON [Concomitant]
     Route: 048
  15. JANUVIA [Concomitant]
     Route: 048

REACTIONS (18)
  - DYSPNOEA [None]
  - HAEMORRHAGIC DIATHESIS [None]
  - BACK PAIN [None]
  - VISION BLURRED [None]
  - MUSCLE SPASMS [None]
  - JOINT SWELLING [None]
  - DERMATITIS ACNEIFORM [None]
  - ASTHENIA [None]
  - FATIGUE [None]
  - PALMAR-PLANTAR ERYTHRODYSAESTHESIA SYNDROME [None]
  - HYPOACUSIS [None]
  - AMNESIA [None]
  - INSOMNIA [None]
  - INCREASED TENDENCY TO BRUISE [None]
  - URINARY TRACT INFECTION [None]
  - MENTAL STATUS CHANGES [None]
  - HAEMOPTYSIS [None]
  - ARTHRALGIA [None]
